FAERS Safety Report 5691426-7 (Version None)
Quarter: 2008Q1

REPORT INFORMATION
  Report Type: 
  Country: None (occurrence: None)
  Receive Date: 20080331
  Receipt Date: 20080313
  Transmission Date: 20080703
  Serious: Yes (Hospitalization)
  Sender: FDA-Public Use
  Company Number: T02-USA-01672-01

PATIENT
  Age: 80 Year
  Sex: Male

DRUGS (8)
  1. MEMANTINE HCL [Suspect]
     Indication: OPEN ANGLE GLAUCOMA
     Dosage: 20 MG QD PO
     Route: 048
     Dates: start: 20010201, end: 20020201
  2. PARACETAMOL [Concomitant]
  3. C-VITAMIN (ASCORBIC ACID) [Concomitant]
  4. VITAMIN E [Concomitant]
  5. GINKO BILOBA (GINKGO BILOBA) [Concomitant]
  6. XALATAN [Concomitant]
  7. AZOPT [Concomitant]
  8. ASPIRIN [Concomitant]

REACTIONS (2)
  - PANCREATITIS [None]
  - PNEUMONIA [None]
